FAERS Safety Report 19790083 (Version 11)
Quarter: 2021Q4

REPORT INFORMATION
  Report Type: Report from Study
  Country: ES (occurrence: ES)
  Receive Date: 20210905
  Receipt Date: 20211224
  Transmission Date: 20220303
  Serious: Yes (Hospitalization)
  Sender: FDA-Public Use
  Company Number: ES-ABBVIE-21K-144-3715383-00

PATIENT
  Sex: Male

DRUGS (9)
  1. CARBIDOPA\LEVODOPA [Suspect]
     Active Substance: CARBIDOPA\LEVODOPA
     Indication: Parkinson^s disease
     Route: 050
     Dates: start: 20170321, end: 202104
  2. CARBIDOPA\LEVODOPA [Suspect]
     Active Substance: CARBIDOPA\LEVODOPA
     Dosage: DOSE UPDATED
     Route: 050
     Dates: start: 202104, end: 202105
  3. CARBIDOPA\LEVODOPA [Suspect]
     Active Substance: CARBIDOPA\LEVODOPA
     Dosage: CONTINUOUS DOSE MODIFIED/DECREASED
     Route: 050
     Dates: start: 202105, end: 202105
  4. CARBIDOPA\LEVODOPA [Suspect]
     Active Substance: CARBIDOPA\LEVODOPA
     Dosage: MORNING DOSE OF 1.5 ML
     Route: 050
     Dates: start: 202105, end: 202105
  5. CARBIDOPA\LEVODOPA [Suspect]
     Active Substance: CARBIDOPA\LEVODOPA
     Dosage: CONTINUOUS DOSE DECREASED
     Route: 050
     Dates: start: 202105, end: 20210804
  6. CARBIDOPA\LEVODOPA [Suspect]
     Active Substance: CARBIDOPA\LEVODOPA
     Dosage: CONTINUOUS DOSE DECREASED TO 2.6 ML/H
     Route: 050
     Dates: start: 20210804
  7. RIVASTIGMINE [Concomitant]
     Active Substance: RIVASTIGMINE
     Indication: Parkinson^s disease
     Dates: start: 202010, end: 20210217
  8. MIRABEGRON [Concomitant]
     Active Substance: MIRABEGRON
     Indication: Bladder disorder
     Route: 048
     Dates: start: 2019
  9. AMANTADINE [Concomitant]
     Active Substance: AMANTADINE
     Indication: Product used for unknown indication
     Dosage: FREQUENCY: 1-0-0
     Dates: end: 202112

REACTIONS (32)
  - Loss of consciousness [Recovered/Resolved]
  - Aggression [Not Recovered/Not Resolved]
  - Musculoskeletal stiffness [Recovering/Resolving]
  - General symptom [Recovering/Resolving]
  - Colitis ulcerative [Recovering/Resolving]
  - Muscle rigidity [Unknown]
  - Blood potassium decreased [Unknown]
  - Renal impairment [Unknown]
  - Dehydration [Recovering/Resolving]
  - Gastric disorder [Not Recovered/Not Resolved]
  - Chromaturia [Recovered/Resolved]
  - Hyperhidrosis [Recovering/Resolving]
  - Weight decreased [Not Recovered/Not Resolved]
  - Fatigue [Unknown]
  - Hypotension [Unknown]
  - Malaise [Unknown]
  - Therapeutic product effect decreased [Unknown]
  - Unevaluable event [Recovered/Resolved]
  - Unevaluable event [Recovered/Resolved]
  - Parkinson^s disease [Not Recovered/Not Resolved]
  - Diarrhoea [Not Recovered/Not Resolved]
  - Stoma site erythema [Recovered/Resolved]
  - Constipation [Not Recovered/Not Resolved]
  - Dyskinesia [Recovering/Resolving]
  - On and off phenomenon [Unknown]
  - Rash [Recovered/Resolved]
  - Somnolence [Unknown]
  - Diarrhoea [Not Recovered/Not Resolved]
  - On and off phenomenon [Recovering/Resolving]
  - Diarrhoea [Recovered/Resolved]
  - Diarrhoea [Recovered/Resolved]
  - Therapeutic product effect incomplete [Not Recovered/Not Resolved]

NARRATIVE: CASE EVENT DATE: 20200101
